FAERS Safety Report 11079373 (Version 1)
Quarter: 2015Q2

REPORT INFORMATION
  Report Type: Spontaneous
  Country: US (occurrence: US)
  Receive Date: 20150430
  Receipt Date: 20150430
  Transmission Date: 20150821
  Serious: No
  Sender: FDA-Public Use
  Company Number: US-ELI_LILLY_AND_COMPANY-US201504005506

PATIENT
  Sex: Male

DRUGS (4)
  1. HUMALOG [Suspect]
     Active Substance: INSULIN LISPRO
     Indication: TYPE 2 DIABETES MELLITUS
     Dosage: 22 U, TID
     Route: 065
     Dates: start: 2012
  2. LANTUS [Concomitant]
     Active Substance: INSULIN GLARGINE
     Dosage: 60 U, EACH EVENING
     Route: 065
  3. HUMALOG [Suspect]
     Active Substance: INSULIN LISPRO
     Dosage: UNK UNK, PRN
     Route: 065
     Dates: start: 2012
  4. LANTUS [Concomitant]
     Active Substance: INSULIN GLARGINE
     Dosage: 20 U, EACH MORNING
     Route: 065

REACTIONS (1)
  - Blood glucose increased [Not Recovered/Not Resolved]
